FAERS Safety Report 14915128 (Version 2)
Quarter: 2018Q4

REPORT INFORMATION
  Report Type: Spontaneous
  Country: PL (occurrence: PL)
  Receive Date: 20180518
  Receipt Date: 20181015
  Transmission Date: 20190204
  Serious: Yes (Hospitalization)
  Sender: FDA-Public Use
  Company Number: PL-MYLANLABS-2018M1014673

PATIENT
  Age: 30 Year
  Sex: Male

DRUGS (6)
  1. CLINDAMYCIN                        /00166004/ [Concomitant]
     Indication: SYSTEMIC MYCOSIS
     Dosage: UNK
  2. ITRACONAZOLE. [Suspect]
     Active Substance: ITRACONAZOLE
     Indication: SYSTEMIC MYCOSIS
     Dosage: UNK
     Route: 048
  3. ITRACONAZOLE. [Suspect]
     Active Substance: ITRACONAZOLE
     Indication: TINEA BARBAE
  4. CLINDAMYCIN. [Suspect]
     Active Substance: CLINDAMYCIN
     Indication: SYSTEMIC MYCOSIS
     Dosage: UNK
  5. CLINDAMYCIN. [Suspect]
     Active Substance: CLINDAMYCIN
     Indication: ERYSIPELAS
  6. ISOCONAZOLE [Concomitant]
     Active Substance: ISOCONAZOLE
     Indication: PRODUCT USED FOR UNKNOWN INDICATION
     Dosage: UNK

REACTIONS (4)
  - Fungal infection [Unknown]
  - Disease progression [Unknown]
  - Dermatitis [Recovering/Resolving]
  - Drug ineffective [Recovering/Resolving]
